FAERS Safety Report 13262055 (Version 1)
Quarter: 2017Q1

REPORT INFORMATION
  Report Type: Spontaneous
  Country: US (occurrence: US)
  Receive Date: 20170222
  Receipt Date: 20170222
  Transmission Date: 20170509
  Serious: Yes (Hospitalization)
  Sender: FDA-Public Use
  Company Number: US-BAUSCH-BL-2017-004480

PATIENT
  Age: 116 Year
  Sex: Female

DRUGS (1)
  1. XENAZINE [Suspect]
     Active Substance: TETRABENAZINE
     Indication: BIPOLAR DISORDER
     Route: 048
     Dates: start: 20160810

REACTIONS (2)
  - Off label use [Unknown]
  - Fracture [Unknown]

NARRATIVE: CASE EVENT DATE: 20160810
